FAERS Safety Report 8432464-0 (Version None)
Quarter: 2012Q2

REPORT INFORMATION
  Report Type: 
  Country: None (occurrence: None)
  Receive Date: 20120607
  Receipt Date: 20120601
  Transmission Date: 20120825
  Serious: Yes (Life-Threatening)
  Sender: FDA-Public Use
  Company Number: AUR-APL-2012-02475

PATIENT
  Age: 23 Day
  Sex: Female

DRUGS (3)
  1. METHADONE HCL [Concomitant]
  2. DIAZEPAM [Concomitant]
  3. FLUOXETINE [Suspect]
     Indication: PRODUCT USED FOR UNKNOWN INDICATION
     Dosage: TRANSPLACENTAL
     Route: 064

REACTIONS (18)
  - OXYGEN SATURATION DECREASED [None]
  - BASE EXCESS DECREASED [None]
  - HYPERTONIA NEONATAL [None]
  - MATERNAL DRUGS AFFECTING FOETUS [None]
  - BRADYCARDIA NEONATAL [None]
  - NEONATAL TACHYPNOEA [None]
  - CRYING [None]
  - NEONATAL RESPIRATORY DISTRESS SYNDROME [None]
  - WEIGHT DECREASED [None]
  - AGITATION NEONATAL [None]
  - CONVULSION NEONATAL [None]
  - TRANSIENT TACHYPNOEA OF THE NEWBORN [None]
  - MUSCULOSKELETAL STIFFNESS [None]
  - POSTURE ABNORMAL [None]
  - NEONATAL COMPLICATIONS OF SUBSTANCE ABUSE [None]
  - ELECTROCARDIOGRAM QT PROLONGED [None]
  - STRIDOR [None]
  - DIARRHOEA NEONATAL [None]
